FAERS Safety Report 6060122-9 (Version None)
Quarter: 2009Q1

REPORT INFORMATION
  Report Type: 
  Country: None (occurrence: None)
  Receive Date: 20090128
  Receipt Date: 20090113
  Transmission Date: 20090719
  Serious: Yes (Hospitalization)
  Sender: FDA-Public Use
  Company Number: 2009S1000717

PATIENT
  Age: 73 Year
  Sex: Female

DRUGS (9)
  1. BISOPROLOL FUMARATE [Suspect]
     Indication: HYPERTENSION
     Dosage: 5 MG; DAILY; ORAL
     Route: 048
     Dates: start: 20050101
  2. LIDOCAINE HYDROCHLORIDE [Suspect]
     Indication: LOCAL ANAESTHESIA
     Dosage: 5 MG; DAILY; SUBCUTANEOUS
     Route: 058
     Dates: start: 20080930, end: 20080930
  3. DIGITOXIN INJ [Suspect]
     Indication: TACHYARRHYTHMIA
     Dosage: 0.07 MG; DAILY; ORAL
     Route: 048
     Dates: start: 20080101
  4. METRONIDAZOLE [Suspect]
     Indication: ARTHRITIS
     Dosage: 40 MG; DAILY; INTRA-ARTICULAR
     Route: 014
     Dates: start: 20080930, end: 20080930
  5. MOXONIDIN (MOXONIDINE) [Suspect]
     Indication: HYPERTENSION
     Dosage: 0.03 MG; DAILY; ORAL
     Route: 048
     Dates: start: 20080401
  6. ALDACTONE [Concomitant]
  7. DIOVAN [Concomitant]
  8. FALITHROM [Concomitant]
  9. NOVONORM [Concomitant]

REACTIONS (2)
  - DRUG INTERACTION [None]
  - SINUS BRADYCARDIA [None]
